FAERS Safety Report 6320562-7 (Version None)
Quarter: 2009Q3

REPORT INFORMATION
  Report Type: 
  Country: None (occurrence: None)
  Receive Date: 20090822
  Receipt Date: 20081205
  Transmission Date: 20100115
  Serious: No
  Sender: FDA-Public Use
  Company Number: US-ABBOTT-08P-163-0487716-00

PATIENT
  Sex: Male
  Weight: 79.45 kg

DRUGS (14)
  1. NIASPAN [Suspect]
     Indication: BLOOD TRIGLYCERIDES INCREASED
     Dates: start: 20081023, end: 20081120
  2. NIASPAN [Suspect]
     Indication: HIGH DENSITY LIPOPROTEIN DECREASED
     Route: 048
     Dates: start: 20081121, end: 20081123
  3. NIASPAN [Suspect]
     Indication: BLOOD CHOLESTEROL INCREASED
     Route: 048
     Dates: start: 20081124
  4. PRAVASTATIN [Concomitant]
     Indication: BLOOD CHOLESTEROL INCREASED
     Route: 048
  5. TRICOR [Concomitant]
     Indication: BLOOD CHOLESTEROL INCREASED
     Route: 048
  6. PLAVIX [Concomitant]
     Indication: CORONARY ARTERY DISEASE
     Route: 048
  7. LEXAPRO [Concomitant]
     Indication: DEPRESSION
  8. PROTONIX [Concomitant]
     Indication: GASTRIC DISORDER
     Route: 048
  9. METOPROLOL [Concomitant]
     Indication: BLOOD PRESSURE
  10. AMBIEN [Concomitant]
     Indication: DRUG USE FOR UNKNOWN INDICATION
  11. ASPIRIN [Concomitant]
     Indication: CARDIAC DISORDER
  12. LISINOPRIL [Concomitant]
     Indication: HYPERTENSION
     Route: 048
  13. CLONAZEPAM [Concomitant]
     Indication: ANXIETY
     Route: 048
  14. CENTRUM CARDIO VITAMIN [Concomitant]
     Indication: DRUG USE FOR UNKNOWN INDICATION

REACTIONS (3)
  - ERYTHEMA [None]
  - FLUSHING [None]
  - PRURITUS [None]
